FAERS Safety Report 13707729 (Version 1)
Quarter: 2017Q2

REPORT INFORMATION
  Report Type: Other
  Country: US (occurrence: US)
  Receive Date: 20170630
  Receipt Date: 20170630
  Transmission Date: 20170830
  Serious: Yes (Other)
  Sender: FDA-Public Use
  Company Number: US-THE PROACTIV LLC-2022802

PATIENT
  Age: 13 Year
  Sex: Female

DRUGS (4)
  1. PROACTIV SOLUTION RENEWING CLEANSER [Suspect]
     Active Substance: BENZOYL PEROXIDE
     Indication: ACNE
     Route: 061
     Dates: start: 20170610, end: 20170611
  2. PROACTIV DEEP CLEANSING WASH [Suspect]
     Active Substance: SALICYLIC ACID
     Route: 061
     Dates: start: 20170610, end: 20170611
  3. PROACTIV PLUS EMERGENCY BLEMISH RELIEF [Suspect]
     Active Substance: BENZOYL PEROXIDE
     Route: 061
     Dates: start: 20170610, end: 20170611
  4. PROACTIV REPAIRING TREATMENT [Suspect]
     Active Substance: BENZOYL PEROXIDE
     Route: 061
     Dates: start: 20170610, end: 20170611

REACTIONS (2)
  - Angioedema [Recovering/Resolving]
  - Urticaria [Recovering/Resolving]

NARRATIVE: CASE EVENT DATE: 20170611
